FAERS Safety Report 7680800-5 (Version None)
Quarter: 2011Q3

REPORT INFORMATION
  Report Type: 
  Country: None (occurrence: None)
  Receive Date: 20110812
  Receipt Date: 20110809
  Transmission Date: 20111222
  Serious: Yes (Hospitalization)
  Sender: FDA-Public Use
  Company Number: US-MERCK-1107USA01808

PATIENT
  Age: 70 Year
  Sex: Female

DRUGS (2)
  1. CENTRUM SILVER [Concomitant]
     Route: 065
     Dates: start: 19710101
  2. FOSAMAX [Suspect]
     Indication: OSTEOPOROSIS
     Route: 048
     Dates: start: 20020101, end: 20100201

REACTIONS (13)
  - DEVICE FAILURE [None]
  - BLOOD CHOLESTEROL INCREASED [None]
  - FALL [None]
  - FRACTURE DELAYED UNION [None]
  - GALLBLADDER DISORDER [None]
  - OESOPHAGEAL RUPTURE [None]
  - TOOTH DISORDER [None]
  - GASTROOESOPHAGEAL REFLUX DISEASE [None]
  - HYPERTENSION [None]
  - FEMUR FRACTURE [None]
  - PAIN IN EXTREMITY [None]
  - ORAL DISORDER [None]
  - FRACTURE NONUNION [None]
